FAERS Safety Report 6309790-4 (Version None)
Quarter: 2009Q3

REPORT INFORMATION
  Report Type: 
  Country: None (occurrence: None)
  Receive Date: 20090814
  Receipt Date: 20090804
  Transmission Date: 20100115
  Serious: Yes (Other)
  Sender: FDA-Public Use
  Company Number: US-ELI_LILLY_AND_COMPANY-US200904006455

PATIENT
  Age: 49 Year
  Sex: Female

DRUGS (2)
  1. PROZAC [Suspect]
     Indication: OBSESSIVE-COMPULSIVE DISORDER
     Dosage: UNK, UNKNOWN
     Route: 065
  2. PROZAC [Suspect]
     Dosage: UNK, UNKNOWN
     Route: 065
     Dates: start: 20090101

REACTIONS (1)
  - HEPATIC FUNCTION ABNORMAL [None]
